FAERS Safety Report 4868640-3 (Version None)
Quarter: 2005Q4

REPORT INFORMATION
  Report Type: 
  Country: None (occurrence: None)
  Receive Date: 20051223
  Receipt Date: 20051216
  Transmission Date: 20060501
  Serious: Yes (Hospitalization)
  Sender: FDA-Public Use
  Company Number: 220510

PATIENT
  Age: 77 Year
  Sex: Male
  Weight: 89.8 kg

DRUGS (9)
  1. RITUXAN [Suspect]
     Indication: B-CELL LYMPHOMA
     Dosage: 776 MG INTRAVENOUS
     Route: 042
     Dates: start: 20050819, end: 20050824
  2. MESNA [Suspect]
     Dosage: 3 G INTRAVENOUS
     Route: 042
     Dates: start: 20050817, end: 20050819
  3. ETOPOSIDE [Suspect]
     Dosage: 207 MG INTRAVENOUS
     Route: 042
     Dates: start: 20050817, end: 20050819
  4. CARBOPLATIN [Suspect]
     Dosage: 505 MG, SINGLE, INTRAVENOUS
     Route: 042
     Dates: start: 20050817, end: 20050817
  5. IFEX [Suspect]
     Dosage: 1.5 G, INTRAVENOUS
     Route: 042
     Dates: start: 20050817, end: 20050819
  6. INSULIN 70/30 (INSULIN HUMAN, NPH HUMAN INSULIN ISOHANE SUSPENSION) [Concomitant]
  7. FLOMAX [Concomitant]
  8. VITAMIN B12 [Concomitant]
  9. ARANESP [Concomitant]

REACTIONS (4)
  - BLOOD CULTURE POSITIVE [None]
  - ESCHERICHIA INFECTION [None]
  - NEUTROPENIA [None]
  - SEPSIS [None]
